FAERS Safety Report 20209563 (Version 2)
Quarter: 2022Q3

REPORT INFORMATION
  Report Type: Spontaneous
  Country: US (occurrence: US)
  Receive Date: 20211221
  Receipt Date: 20220714
  Transmission Date: 20221026
  Serious: No
  Sender: FDA-Public Use
  Company Number: US-SA-SAC20211210001019

PATIENT
  Age: 20 Year
  Sex: Female
  Weight: 102.04 kg

DRUGS (3)
  1. DUPIXENT [Suspect]
     Active Substance: DUPILUMAB
     Indication: Dermatitis atopic
     Dosage: 300 MG, QOW
     Route: 058
     Dates: start: 201907
  2. MINERALS\VITAMINS [Concomitant]
     Active Substance: MINERALS\VITAMINS
     Dosage: 1 DF, QD
     Route: 048
     Dates: start: 20211108
  3. TEMOVATE [Concomitant]
     Active Substance: CLOBETASOL PROPIONATE
     Indication: Rash
     Dosage: APPLY TOPICALLY TWICE DAILY AS NEEDED (2 GRAM DAILY)
     Route: 061
     Dates: start: 20211129

REACTIONS (5)
  - Eczema [Unknown]
  - Skin plaque [Unknown]
  - Skin exfoliation [Unknown]
  - Skin discolouration [Unknown]
  - Exposure during pregnancy [Unknown]
